FAERS Safety Report 6321795-6 (Version None)
Quarter: 2009Q3

REPORT INFORMATION
  Report Type: 
  Country: None (occurrence: None)
  Receive Date: 20090824
  Receipt Date: 20090819
  Transmission Date: 20100115
  Serious: Yes (Hospitalization, Other)
  Sender: FDA-Public Use
  Company Number: US-BRISTOL-MYERS SQUIBB COMPANY-14641294

PATIENT
  Age: 34 Year
  Sex: Female

DRUGS (3)
  1. ABILIFY [Suspect]
     Indication: BIPOLAR I DISORDER
     Dosage: 12MAR09=2MG QD,INCREASED TO 5MG QD AND 10MG QD ON 18APR09
     Route: 048
     Dates: start: 20090312
  2. XANAX [Suspect]
     Indication: ANXIETY
     Dosage: ON 18-APR-2009 - 30 TO 45 TABLETS WAS TAKEN.  0.5MG/D RECEIVED ONLY OCCASIONALLY
     Dates: start: 20090418
  3. WELLBUTRIN [Suspect]
     Dosage: TABLET
     Dates: end: 20090416

REACTIONS (3)
  - AGGRESSION [None]
  - CONSCIOUSNESS FLUCTUATING [None]
  - SUICIDE ATTEMPT [None]
